FAERS Safety Report 8561091-X (Version None)
Quarter: 2012Q3

REPORT INFORMATION
  Report Type: 
  Country: None (occurrence: None)
  Receive Date: 20120802
  Receipt Date: 20120420
  Transmission Date: 20120928
  Serious: No
  Sender: FDA-Public Use
  Company Number: US-BRISTOL-MYERS SQUIBB COMPANY-16526188

PATIENT
  Age: 74 Year
  Sex: Male

DRUGS (3)
  1. NORVIR [Concomitant]
  2. REYATAZ [Suspect]
  3. TRUVADA [Concomitant]

REACTIONS (2)
  - NAUSEA [None]
  - SEASONAL ALLERGY [None]
